FAERS Safety Report 6817123-X (Version None)
Quarter: 2010Q3

REPORT INFORMATION
  Report Type: 
  Country: None (occurrence: None)
  Receive Date: 20100706
  Receipt Date: 20100628
  Transmission Date: 20110219
  Serious: Yes (Hospitalization)
  Sender: FDA-Public Use
  Company Number: US-JNJFOC-20100608024

PATIENT
  Sex: Female
  Weight: 54 kg

DRUGS (2)
  1. INFLIXIMAB, RECOMBINANT [Suspect]
     Indication: COLITIS
     Route: 042
  2. INFLIXIMAB, RECOMBINANT [Suspect]
     Route: 042

REACTIONS (2)
  - ABDOMINAL ADHESIONS [None]
  - SMALL INTESTINAL OBSTRUCTION [None]
